FAERS Safety Report 8524910-9 (Version None)
Quarter: 2012Q3

REPORT INFORMATION
  Report Type: 
  Country: None (occurrence: None)
  Receive Date: 20120720
  Receipt Date: 20120711
  Transmission Date: 20120928
  Serious: Yes (Hospitalization, Disabling)
  Sender: FDA-Public Use
  Company Number: FR-JNJFOC-20120705549

PATIENT
  Age: 60 Year
  Sex: Female

DRUGS (6)
  1. STELARA [Suspect]
     Route: 058
     Dates: start: 20100101
  2. DURAGESIC-100 [Concomitant]
     Route: 062
  3. CORTICOSTEROIDS [Concomitant]
     Route: 065
  4. SPASFON [Concomitant]
     Route: 062
  5. STELARA [Suspect]
     Indication: CROHN'S DISEASE
     Route: 058
     Dates: start: 20110901
  6. DEBRIDAT [Concomitant]
     Route: 065

REACTIONS (3)
  - MULTIPLE SCLEROSIS [None]
  - OFF LABEL USE [None]
  - INAPPROPRIATE SCHEDULE OF DRUG ADMINISTRATION [None]
